FAERS Safety Report 8214381-4 (Version None)
Quarter: 2012Q1

REPORT INFORMATION
  Report Type: 
  Country: None (occurrence: None)
  Receive Date: 20120316
  Receipt Date: 20120307
  Transmission Date: 20120608
  Serious: Yes (Life-Threatening, Hospitalization)
  Sender: FDA-Public Use
  Company Number: ZA-JNJFOC-20110907239

PATIENT
  Age: 65 Year
  Sex: Female

DRUGS (1)
  1. TOPAMAX [Suspect]
     Indication: CONVULSION
     Dosage: 100 MG IN THE MORNING AND 100 MG AT NIGHT
     Route: 048
     Dates: start: 20020101

REACTIONS (3)
  - CONVULSION [None]
  - NEOPLASM RECURRENCE [None]
  - TREATMENT NONCOMPLIANCE [None]
